FAERS Safety Report 26088054 (Version 1)
Quarter: 2025Q4

REPORT INFORMATION
  Report Type: Spontaneous
  Country: GB (occurrence: GB)
  Receive Date: 20251125
  Receipt Date: 20251125
  Transmission Date: 20260118
  Serious: Yes (Other)
  Sender: IDORSIA PHARMACEUTICALS
  Company Number: GB-IDORSIA-012583-2025-GB

PATIENT
  Sex: Female

DRUGS (2)
  1. QUVIVIQ [Suspect]
     Active Substance: DARIDOREXANT
     Indication: Product used for unknown indication
     Dosage: 25 MG
     Route: 065
  2. QUVIVIQ [Suspect]
     Active Substance: DARIDOREXANT
     Dosage: 50 MG
     Route: 065

REACTIONS (2)
  - Suicidal ideation [Unknown]
  - Depression [Unknown]
